FAERS Safety Report 13207408 (Version 1)
Quarter: 2017Q1

REPORT INFORMATION
  Report Type: Spontaneous
  Country: US (occurrence: US)
  Receive Date: 20170209
  Receipt Date: 20170209
  Transmission Date: 20170428
  Serious: No
  Sender: FDA-Public Use
  Company Number: US-SA-2017SA002139

PATIENT
  Sex: Female

DRUGS (14)
  1. ALIROCUMAB PREFILLED PEN [Concomitant]
     Active Substance: ALIROCUMAB
     Dates: start: 20160412
  2. CARVEDILOL. [Concomitant]
     Active Substance: CARVEDILOL
  3. CLOPIDOGREL [Concomitant]
     Active Substance: CLOPIDOGREL BISULFATE
  4. ONDANSETRON [Concomitant]
     Active Substance: ONDANSETRON
  5. PRALUENT [Suspect]
     Active Substance: ALIROCUMAB
     Route: 058
     Dates: start: 20160412
  6. CARVEDILOL. [Concomitant]
     Active Substance: CARVEDILOL
  7. LANTUS [Concomitant]
     Active Substance: INSULIN GLARGINE
  8. GABAPENTIN. [Concomitant]
     Active Substance: GABAPENTIN
  9. LANSOPRAZOLE. [Concomitant]
     Active Substance: LANSOPRAZOLE
  10. ISOSORBIDE MONONITRATE. [Concomitant]
     Active Substance: ISOSORBIDE MONONITRATE
  11. NITROFUR MAC [Concomitant]
     Active Substance: NITROFURANTOIN
  12. ZANTAC [Concomitant]
     Active Substance: RANITIDINE HYDROCHLORIDE
  13. DICYCLOMINE [Concomitant]
     Active Substance: DICYCLOMINE HYDROCHLORIDE
  14. NOVOLOG [Concomitant]
     Active Substance: INSULIN ASPART

REACTIONS (1)
  - Urinary tract infection [Not Recovered/Not Resolved]
